FAERS Safety Report 6143646-5 (Version None)
Quarter: 2009Q2

REPORT INFORMATION
  Report Type: 
  Country: None (occurrence: None)
  Receive Date: 20090403
  Receipt Date: 20090320
  Transmission Date: 20091009
  Serious: Yes (Other)
  Sender: FDA-Public Use
  Company Number: CN-ROCHE-478420

PATIENT
  Sex: Male
  Weight: 65 kg

DRUGS (3)
  1. CELLCEPT [Suspect]
     Indication: RENAL TRANSPLANT
     Route: 048
     Dates: start: 20040101
  2. PREDNISONE [Concomitant]
     Indication: RENAL TRANSPLANT
     Route: 048
     Dates: start: 19960709
  3. CICLOSPORINE A [Concomitant]
     Indication: RENAL TRANSPLANT
     Dosage: MANUFACTURE: HANGZHOU ZHONG MEI HUA DONG PHARMA
     Route: 048
     Dates: start: 19960709

REACTIONS (5)
  - ACIDOSIS [None]
  - CARBON DIOXIDE ABNORMAL [None]
  - GINGIVAL HYPERPLASIA [None]
  - SKIN PAPILLOMA [None]
  - TOOTH LOSS [None]
